FAERS Safety Report 14174290 (Version 2)
Quarter: 2017Q4

REPORT INFORMATION
  Report Type: Spontaneous
  Country: IT (occurrence: IT)
  Receive Date: 20171109
  Receipt Date: 20171120
  Transmission Date: 20180321
  Serious: Yes (Hospitalization, Other)
  Sender: FDA-Public Use
  Company Number: IT-PFIZER INC-2017480774

PATIENT
  Age: 73 Year
  Sex: Female

DRUGS (5)
  1. DEPAKIN [Concomitant]
     Active Substance: VALPROATE SODIUM
     Indication: DEPRESSION
     Dosage: UNK
  2. STILNOX [Suspect]
     Active Substance: ZOLPIDEM TARTRATE
     Dosage: 200 MG, TOTAL
     Dates: start: 20171002, end: 2017
  3. KEPPRA [Concomitant]
     Active Substance: LEVETIRACETAM
     Indication: DEPRESSION
     Dosage: UNK
  4. XANAX [Suspect]
     Active Substance: ALPRAZOLAM
     Dosage: 5 MG, TOTAL
     Dates: start: 20171002, end: 2017
  5. HALCION [Suspect]
     Active Substance: TRIAZOLAM
     Dosage: 4 MG, TOTAL
     Route: 048
     Dates: start: 20171002, end: 2017

REACTIONS (2)
  - Drug abuse [Unknown]
  - Sopor [Unknown]

NARRATIVE: CASE EVENT DATE: 20171002
